FAERS Safety Report 4971177-4 (Version None)
Quarter: 2006Q1

REPORT INFORMATION
  Report Type: 
  Country: None (occurrence: None)
  Receive Date: 20060222
  Receipt Date: 20050215
  Transmission Date: 20060701
  Serious: Yes (Other)
  Sender: FDA-Public Use
  Company Number: HQWYE361516FEB05

PATIENT
  Age: 60 Year
  Sex: Female

DRUGS (1)
  1. PROTONIX [Suspect]
     Indication: DYSPEPSIA
     Dosage: 40 MG - ORAL
     Route: 048

REACTIONS (2)
  - CHEST PAIN [None]
  - PHARYNGEAL OEDEMA [None]
